FAERS Safety Report 8428827-X (Version None)
Quarter: 2012Q2

REPORT INFORMATION
  Report Type: 
  Country: None (occurrence: None)
  Receive Date: 20120612
  Receipt Date: 20120605
  Transmission Date: 20120825
  Serious: Yes (Hospitalization, Other)
  Sender: FDA-Public Use
  Company Number: BR-ABBOTT-12P-020-0922326-00

PATIENT
  Age: 19 Year
  Sex: Female

DRUGS (7)
  1. FLAGYL [Suspect]
     Indication: CROHN'S DISEASE
  2. ACYCLOVIR [Concomitant]
     Indication: PRODUCT USED FOR UNKNOWN INDICATION
  3. ROCEPHIN [Concomitant]
     Indication: PRODUCT USED FOR UNKNOWN INDICATION
  4. HUMIRA [Suspect]
     Indication: CROHN'S DISEASE
     Dates: start: 20120301, end: 20120401
  5. HUMIRA [Suspect]
  6. PHENYTOIN [Suspect]
     Indication: GRAND MAL CONVULSION
  7. CIPROFLOXACIN [Suspect]
     Indication: CROHN'S DISEASE

REACTIONS (2)
  - STEVENS-JOHNSON SYNDROME [None]
  - GRAND MAL CONVULSION [None]
